FAERS Safety Report 11853310 (Version 1)
Quarter: 2015Q4

REPORT INFORMATION
  Report Type: Spontaneous
  Country: US (occurrence: US)
  Receive Date: 20151218
  Receipt Date: 20151218
  Transmission Date: 20160305
  Serious: No
  Sender: FDA-Public Use
  Company Number: US-OTSUKA-US-2015-11427

PATIENT
  Age: 52 Year
  Sex: Female

DRUGS (1)
  1. ABILIFY MAINTENA [Suspect]
     Active Substance: ARIPIPRAZOLE
     Indication: BIPOLAR DISORDER
     Dosage: 400 MG, QM
     Route: 030
     Dates: start: 20150219

REACTIONS (6)
  - Inability to afford medication [Unknown]
  - Speech disorder [Not Recovered/Not Resolved]
  - Drug dose omission [Unknown]
  - Pruritus [Recovered/Resolved]
  - Off label use [Unknown]
  - Dry skin [Not Recovered/Not Resolved]

NARRATIVE: CASE EVENT DATE: 20150219
